FAERS Safety Report 6181335-1 (Version None)
Quarter: 2009Q2

REPORT INFORMATION
  Report Type: 
  Country: None (occurrence: None)
  Receive Date: 20090506
  Receipt Date: 20090430
  Transmission Date: 20091009
  Serious: Yes (Hospitalization)
  Sender: FDA-Public Use
  Company Number: DE-MERCK-0901DEU00221

PATIENT
  Age: 11 Year
  Sex: Male
  Weight: 48 kg

DRUGS (3)
  1. SINGULAIR [Suspect]
     Indication: ASTHMA EXERCISE INDUCED
     Route: 048
     Dates: start: 20080901, end: 20081008
  2. SALMETEROL [Concomitant]
     Indication: ASTHMA EXERCISE INDUCED
     Route: 065
     Dates: start: 20080101
  3. FLUTICASONE PROPIONATE AND SALMETEROL XINAFOATE [Concomitant]
     Indication: ASTHMA EXERCISE INDUCED
     Route: 065
     Dates: start: 20080101

REACTIONS (3)
  - HAEMORRHAGIC DIATHESIS [None]
  - OVERDOSE [None]
  - VON WILLEBRAND'S DISEASE [None]
